FAERS Safety Report 4837279-8 (Version None)
Quarter: 2005Q4

REPORT INFORMATION
  Report Type: 
  Country: None (occurrence: None)
  Receive Date: 20051122
  Receipt Date: 20051107
  Transmission Date: 20060501
  Serious: Yes (Death)
  Sender: FDA-Public Use
  Company Number: 005983

PATIENT
  Age: 86 Year
  Sex: Female
  Weight: 50 kg

DRUGS (5)
  1. ZEBETA [Suspect]
     Dosage: 1.25 MG, BID, ORAL
     Route: 048
     Dates: end: 20050613
  2. COVERSYL (PERINDOPRIL) [Suspect]
     Dosage: 2 MG, BID, ORAL
     Route: 048
     Dates: end: 20050613
  3. PREVISCAN (FLUINDIONE) [Suspect]
     Dosage: 5 MG, QD, ORAL
     Route: 048
     Dates: end: 20050613
  4. FUROSEMIDE [Suspect]
     Dosage: QD, ORAL
     Route: 048
     Dates: end: 20050613
  5. DIGOXIN [Suspect]
     Dosage: 0.25 MG, QD, ORAL
     Route: 048
     Dates: end: 20050613

REACTIONS (7)
  - BLOOD PRESSURE SYSTOLIC INCREASED [None]
  - CEREBRAL HAEMORRHAGE [None]
  - ECCHYMOSIS [None]
  - HEART RATE INCREASED [None]
  - HYPOTHERMIA [None]
  - OXYGEN SATURATION DECREASED [None]
  - PULMONARY CONGESTION [None]
